FAERS Safety Report 19109447 (Version 1)
Quarter: 2021Q2

REPORT INFORMATION
  Report Type: Spontaneous
  Country: FR (occurrence: FR)
  Receive Date: 20210409
  Receipt Date: 20210409
  Transmission Date: 20210717
  Serious: Yes (Other)
  Sender: FDA-Public Use
  Company Number: FR-SUN PHARMACEUTICAL INDUSTRIES LTD-2021R1-290418

PATIENT
  Age: 66 Year
  Sex: Female

DRUGS (3)
  1. CLOPIDOGREL [Suspect]
     Active Substance: CLOPIDOGREL BISULFATE
     Indication: CARDIOVASCULAR DISORDER
     Dosage: UNK
     Route: 065
  2. OMEPRAZOLE. [Concomitant]
     Active Substance: OMEPRAZOLE
     Indication: PROPHYLAXIS AGAINST GASTROINTESTINAL ULCER
     Dosage: UNK
     Route: 065
  3. ASPIRIN. [Suspect]
     Active Substance: ASPIRIN
     Indication: CARDIOVASCULAR DISORDER
     Dosage: UNK (LOW DOSE)
     Route: 065

REACTIONS (1)
  - Chronic gastrointestinal bleeding [Recovering/Resolving]
